FAERS Safety Report 9917740 (Version 1)
Quarter: 2014Q1

REPORT INFORMATION
  Report Type: Spontaneous
  Country: US (occurrence: US)
  Receive Date: 20140221
  Receipt Date: 20140221
  Transmission Date: 20141002
  Serious: Yes (Other)
  Sender: FDA-Public Use
  Company Number: PHHY2014US020622

PATIENT
  Sex: Male

DRUGS (7)
  1. METFORMIN [Suspect]
     Route: 064
  2. FENOFIBRATE [Suspect]
     Route: 064
  3. OMEPRAZOLE [Suspect]
     Route: 064
  4. GEMFIBROZIL [Suspect]
     Route: 064
  5. NIACIN [Suspect]
     Route: 064
  6. INSULIN [Suspect]
     Route: 064
  7. OMEGA-3 FATTY ACIDS [Suspect]
     Route: 064

REACTIONS (3)
  - Premature baby [Unknown]
  - Low birth weight baby [Unknown]
  - Foetal exposure during pregnancy [Unknown]
